FAERS Safety Report 5265906-2 (Version None)
Quarter: 2007Q1

REPORT INFORMATION
  Report Type: 
  Country: None (occurrence: None)
  Receive Date: 20070315
  Receipt Date: 20070301
  Transmission Date: 20070707
  Serious: Yes (Other)
  Sender: FDA-Public Use
  Company Number: PHRM2007FR00956

PATIENT
  Age: 70 Year
  Sex: Female

DRUGS (3)
  1. METFORMIN HCL [Concomitant]
     Indication: DIABETES MELLITUS
     Dosage: 850 MG, TID
  2. NOVONORM [Concomitant]
     Dosage: 2 MG, TID
  3. COTAREG [Suspect]
     Indication: HYPERTENSION
     Route: 048

REACTIONS (1)
  - HYPERKALAEMIA [None]
